FAERS Safety Report 10213744 (Version 1)
Quarter: 2014Q2

REPORT INFORMATION
  Report Type: Spontaneous
  Country: US (occurrence: None)
  Receive Date: 20140529
  Receipt Date: 20140529
  Transmission Date: 20141212
  Serious: Yes (Other)
  Sender: FDA-Public Use
  Company Number: 2014AP003067

PATIENT
  Sex: 0

DRUGS (1)
  1. PREDNISOLONE [Suspect]
     Indication: COLITIS ULCERATIVE
     Route: 048

REACTIONS (4)
  - Adrenal insufficiency [None]
  - Fatigue [None]
  - Abdominal distension [None]
  - Hypotension [None]
